FAERS Safety Report 8923068 (Version 2)
Quarter: 2012Q4

REPORT INFORMATION
  Report Type: 
  Country: JP (occurrence: JP)
  Receive Date: 20121124
  Receipt Date: 20121129
  Transmission Date: 20130627
  Serious: Yes (Other)
  Sender: FDA-Public Use
  Company Number: PHHY2012JP103080

PATIENT
  Age: 80 Year
  Sex: Male

DRUGS (1)
  1. RIVASTIGMINE [Suspect]
     Indication: DEMENTIA
     Route: 062

REACTIONS (2)
  - Status epilepticus [Recovering/Resolving]
  - Convulsion [Unknown]
